FAERS Safety Report 18528897 (Version 3)
Quarter: 2021Q2

REPORT INFORMATION
  Report Type: Spontaneous
  Country: US (occurrence: US)
  Receive Date: 20201120
  Receipt Date: 20210413
  Transmission Date: 20210717
  Serious: Yes (Hospitalization)
  Sender: FDA-Public Use
  Company Number: US-PFIZER INC-2020456001

PATIENT
  Age: 71 Year
  Sex: Male

DRUGS (9)
  1. KEYTRUDA [Concomitant]
     Active Substance: PEMBROLIZUMAB
     Dosage: UNK
     Dates: end: 20210222
  2. INLYTA [Suspect]
     Active Substance: AXITINIB
     Indication: RENAL CELL CARCINOMA
     Dosage: 5 MG, 2X/DAY
     Route: 048
     Dates: start: 20171027
  3. INLYTA [Suspect]
     Active Substance: AXITINIB
     Dosage: 5 MG, 1X/DAY
     Dates: start: 20201112
  4. ESTER?C [ASCORBIC ACID] [Concomitant]
     Active Substance: ASCORBIC ACID
     Dosage: UNK (1000?200 MG)
  5. ECHINACEA [Concomitant]
     Active Substance: ECHINACEA, UNSPECIFIED
     Dosage: UNK
  6. INLYTA [Suspect]
     Active Substance: AXITINIB
     Dosage: 5 MG, 2X/DAY
     Route: 048
     Dates: end: 20210222
  7. GARLIC. [Concomitant]
     Active Substance: GARLIC
     Dosage: UNK
  8. ASPIRIN. [Concomitant]
     Active Substance: ASPIRIN
     Dosage: UNK
  9. L?ARGININE [Concomitant]
     Active Substance: ARGININE
     Dosage: UNK

REACTIONS (7)
  - Blood creatinine increased [Unknown]
  - Constipation [Unknown]
  - Decreased appetite [Unknown]
  - Blood potassium increased [Unknown]
  - Hypertension [Unknown]
  - Dysgeusia [Unknown]
  - Diarrhoea [Unknown]
